FAERS Safety Report 11475921 (Version 4)
Quarter: 2017Q1

REPORT INFORMATION
  Report Type: Report from Study
  Country: US (occurrence: US)
  Receive Date: 20150909
  Receipt Date: 20170127
  Transmission Date: 20170428
  Serious: Yes (Other)
  Sender: FDA-Public Use
  Company Number: US-AMGEN-USASL2015089515

PATIENT
  Age: 5 Year
  Sex: Female

DRUGS (1)
  1. BLINCYTO [Suspect]
     Active Substance: BLINATUMOMAB
     Indication: ACUTE LYMPHOCYTIC LEUKAEMIA
     Dosage: UNK
     Route: 065
     Dates: start: 20150827

REACTIONS (8)
  - Sinusitis [Unknown]
  - Toxic leukoencephalopathy [Unknown]
  - Seizure [Unknown]
  - Somnolence [Unknown]
  - Off label use [Unknown]
  - Nervous system disorder [Unknown]
  - Drug effect incomplete [Unknown]
  - Postictal paralysis [Unknown]

NARRATIVE: CASE EVENT DATE: 201509
